FAERS Safety Report 20703268 (Version 1)
Quarter: 2022Q2

REPORT INFORMATION
  Report Type: Spontaneous
  Country: AU (occurrence: AU)
  Receive Date: 20220413
  Receipt Date: 20220413
  Transmission Date: 20220721
  Serious: Yes (Other)
  Sender: FDA-Public Use
  Company Number: AU-SA-SAC20220408001334

PATIENT
  Age: 55 Year
  Sex: Female

DRUGS (6)
  1. TERIFLUNOMIDE [Suspect]
     Active Substance: TERIFLUNOMIDE
     Route: 065
  2. ERGOCALCIFEROL [Concomitant]
     Active Substance: ERGOCALCIFEROL
     Indication: Back pain
  3. FINGOLIMOD [Suspect]
     Active Substance: FINGOLIMOD
     Indication: Multiple sclerosis
     Route: 065
  4. DIMETHYL FUMARATE [Suspect]
     Active Substance: DIMETHYL FUMARATE
     Indication: Multiple sclerosis
     Route: 065
  5. BACLOFEN [Suspect]
     Active Substance: BACLOFEN
     Route: 065
  6. OFATUMUMAB [Concomitant]
     Active Substance: OFATUMUMAB

REACTIONS (13)
  - Central nervous system lesion [Unknown]
  - Ataxia [Unknown]
  - Disability [Unknown]
  - Influenza like illness [Unknown]
  - Flushing [Unknown]
  - Paraparesis [Unknown]
  - Infection [Unknown]
  - Diarrhoea [Unknown]
  - Fatigue [Unknown]
  - Micturition urgency [Unknown]
  - Back pain [Unknown]
  - Pruritus [Unknown]
  - Drug intolerance [Unknown]

NARRATIVE: CASE EVENT DATE: 20200901
